FAERS Safety Report 13884075 (Version 3)
Quarter: 2018Q2

REPORT INFORMATION
  Report Type: Report from Study
  Country: None (occurrence: US)
  Receive Date: 20170820
  Receipt Date: 20180627
  Transmission Date: 20180711
  Serious: No
  Sender: FDA-Public Use
  Company Number: US-ABBVIE-17K-163-2072515-00

PATIENT
  Sex: Female

DRUGS (1)
  1. HUMIRA [Suspect]
     Active Substance: ADALIMUMAB
     Indication: RHEUMATOID ARTHRITIS
     Route: 058

REACTIONS (6)
  - Musculoskeletal pain [Unknown]
  - Tendonitis [Unknown]
  - Hypoaesthesia [Unknown]
  - Exostosis [Unknown]
  - Polyarthritis [Unknown]
  - Fibromyalgia [Unknown]
